FAERS Safety Report 5690123-1 (Version None)
Quarter: 2008Q1

REPORT INFORMATION
  Report Type: 
  Country: None (occurrence: None)
  Receive Date: 20080331
  Receipt Date: 20080331
  Transmission Date: 20080703
  Serious: No
  Sender: FDA-Public Use
  Company Number: None

PATIENT
  Sex: Female
  Weight: 70.3075 kg

DRUGS (1)
  1. CHANTIX [Suspect]
     Indication: SMOKING CESSATION THERAPY
     Dosage: 0.5 1X/DAY THEN 2X/DAY PO
     Route: 048
     Dates: start: 20080317, end: 20080323

REACTIONS (22)
  - ABDOMINAL PAIN UPPER [None]
  - ANGER [None]
  - ASTHENIA [None]
  - AXILLARY PAIN [None]
  - BACK PAIN [None]
  - CHEST PAIN [None]
  - CRYING [None]
  - DEPRESSION [None]
  - DIARRHOEA [None]
  - DYSPNOEA [None]
  - FATIGUE [None]
  - FEELING OF DESPAIR [None]
  - GASTROINTESTINAL PAIN [None]
  - HEADACHE [None]
  - LETHARGY [None]
  - MOOD ALTERED [None]
  - MUSCULOSKELETAL PAIN [None]
  - NECK PAIN [None]
  - PAIN [None]
  - PAIN IN EXTREMITY [None]
  - RESTLESS LEGS SYNDROME [None]
  - SLEEP DISORDER DUE TO GENERAL MEDICAL CONDITION, INSOMNIA TYPE [None]
